FAERS Safety Report 23543061 (Version 2)
Quarter: 2024Q1

REPORT INFORMATION
  Report Type: Report from Study
  Country: US (occurrence: US)
  Receive Date: 20240220
  Receipt Date: 20240227
  Transmission Date: 20240410
  Serious: Yes (Other)
  Sender: FDA-Public Use
  Company Number: US-ABBVIE-5643513

PATIENT
  Sex: Female

DRUGS (1)
  1. CREON [Suspect]
     Active Substance: PANCRELIPASE AMYLASE\PANCRELIPASE LIPASE\PANCRELIPASE PROTEASE
     Indication: Product used for unknown indication
     Dosage: FORM STRENGTH: 36000 UNIT, 2 CAPSULE WITH MEALS AND 1 CAPSULE WITH SNACK
     Route: 048
     Dates: start: 2016

REACTIONS (8)
  - Fracture [Unknown]
  - Malabsorption [Not Recovered/Not Resolved]
  - Asthenia [Not Recovered/Not Resolved]
  - Metabolic disorder [Not Recovered/Not Resolved]
  - Pain [Not Recovered/Not Resolved]
  - Pancreatic steatosis [Unknown]
  - Irritable bowel syndrome [Unknown]
  - Pancreatic failure [Unknown]
